FAERS Safety Report 7353145-0 (Version None)
Quarter: 2011Q1

REPORT INFORMATION
  Report Type: 
  Country: None (occurrence: None)
  Receive Date: 20110315
  Receipt Date: 20110304
  Transmission Date: 20110831
  Serious: No
  Sender: FDA-Public Use
  Company Number: US-JNJFOC-20110303551

PATIENT
  Sex: Male
  Weight: 92.99 kg

DRUGS (2)
  1. INVEGA SUSTENNA [Suspect]
     Indication: SCHIZOPHRENIA
     Route: 030
  2. INVEGA SUSTENNA [Suspect]
     Dosage: STOP DATE: 2010
     Route: 030

REACTIONS (6)
  - DRUG INEFFECTIVE [None]
  - INAPPROPRIATE AFFECT [None]
  - FEELING ABNORMAL [None]
  - SPEECH DISORDER [None]
  - DISTURBANCE IN ATTENTION [None]
  - HALLUCINATION, AUDITORY [None]
